FAERS Safety Report 4660399-8 (Version None)
Quarter: 2005Q2

REPORT INFORMATION
  Report Type: 
  Country: None (occurrence: None)
  Receive Date: 20050512
  Receipt Date: 20050318
  Transmission Date: 20051028
  Serious: Yes (Death)
  Sender: FDA-Public Use
  Company Number: DE-SANOFI-SYNTHELABO-A04200500283

PATIENT
  Sex: Male
  Weight: 82 kg

DRUGS (6)
  1. ELOXATIN [Suspect]
     Indication: COLON CANCER
     Route: 041
     Dates: start: 20041223, end: 20041223
  2. XELODA [Suspect]
     Indication: COLON CANCER
     Dosage: 960.5 MG/M2
     Route: 048
     Dates: start: 20041215, end: 20041228
  3. ZOFRAN [Concomitant]
     Indication: PROPHYLAXIS OF NAUSEA AND VOMITING
     Dosage: 16 MG
     Route: 048
  4. BLOPRESS [Concomitant]
     Indication: HYPERTENSION
     Route: 048
  5. CYNT [Concomitant]
     Indication: HYPERTENSION
     Route: 048
  6. NEXIUM [Concomitant]
     Indication: NAUSEA
     Route: 048

REACTIONS (9)
  - DRUG TOXICITY [None]
  - ENTEROCOLITIS HAEMORRHAGIC [None]
  - HEPATIC FAILURE [None]
  - MULTI-ORGAN FAILURE [None]
  - PANCYTOPENIA [None]
  - PERITONITIS [None]
  - SHOCK [None]
  - SUBDURAL HAEMATOMA [None]
  - VOMITING [None]
